FAERS Safety Report 7387045-7 (Version None)
Quarter: 2011Q1

REPORT INFORMATION
  Report Type: 
  Country: None (occurrence: None)
  Receive Date: 20110331
  Receipt Date: 20110321
  Transmission Date: 20110831
  Serious: Yes (Hospitalization, Other)
  Sender: FDA-Public Use
  Company Number: CZ-NOVOPROD-324163

PATIENT
  Sex: Male
  Weight: 3.33 kg

DRUGS (25)
  1. LEVEMIR [Suspect]
     Dosage: INCREASED DOSE
     Route: 064
     Dates: start: 20090217
  2. ISRADIPINE [Concomitant]
     Indication: GESTATIONAL HYPERTENSION
     Dosage: 5 MG, QD
     Route: 064
     Dates: start: 20090707, end: 20090805
  3. LEVEMIR [Suspect]
     Dosage: 68 IU, QD
     Route: 064
     Dates: start: 20090805, end: 20090805
  4. HUMALOG [Suspect]
     Dosage: INCREASED DOSE
     Route: 064
     Dates: start: 20090331
  5. HUMALOG [Suspect]
     Dosage: INCREASED DOSE
     Route: 064
     Dates: start: 20090427
  6. HUMALOG [Suspect]
     Dosage: INCREASED DOSE
     Route: 064
     Dates: start: 20090707
  7. LEVEMIR [Suspect]
     Dosage: 45 IU, QD
     Route: 064
     Dates: start: 20090202
  8. LEVEMIR [Suspect]
     Dosage: INCREASED DOSE
     Route: 064
     Dates: start: 20090331
  9. HUMALOG [Suspect]
     Dosage: INCREASED DOSE
     Route: 064
     Dates: start: 20090406
  10. LEVEMIR [Suspect]
     Dosage: INCREASED DOSE
     Route: 064
     Dates: start: 20090427
  11. HUMALOG [Suspect]
     Dosage: INCREASED DOSE
     Route: 064
     Dates: start: 20090217
  12. HUMALOG [Suspect]
     Dosage: 92 IU, QD
     Route: 064
     Dates: start: 20090805, end: 20090805
  13. LEVEMIR [Suspect]
     Dosage: INCREASED DOSE
     Route: 064
     Dates: start: 20090602
  14. LEVEMIR [Suspect]
     Dosage: INCREASED DOSE
     Route: 064
     Dates: start: 20090707
  15. LEVEMIR [Suspect]
     Dosage: 76 UNK, (36+0+0+40)
     Route: 064
  16. AMOXICILLIN [Concomitant]
     Indication: URINARY TRACT INFECTION
  17. LEVEMIR [Suspect]
     Dosage: INCREASED DOSE
     Route: 064
     Dates: start: 20090406
  18. HUMALOG [Suspect]
     Dosage: 48 IU, QD
     Route: 064
     Dates: start: 20090202
  19. HUMALOG [Suspect]
     Dosage: INCREASED DOSE
     Route: 064
     Dates: start: 20090602
  20. LEVEMIR [Suspect]
     Dosage: UNK IU, QD
     Route: 064
     Dates: start: 20070101
  21. LEVEMIR [Suspect]
     Dosage: 74 IU, QD
     Route: 064
     Dates: start: 20090720
  22. HUMALOG [Suspect]
     Indication: TYPE 1 DIABETES MELLITUS
     Dosage: 15 IU, TID
     Route: 064
     Dates: start: 20050101
  23. METHYLDOPA [Concomitant]
     Dosage: 4X1 TBL FROM 30TH WEEK
     Route: 064
     Dates: end: 20090805
  24. HUMALOG [Suspect]
     Dosage: 100 IU, QD (10+30+30+30)
     Route: 064
     Dates: start: 20090720
  25. METHYLDOPA [Concomitant]
     Indication: GESTATIONAL HYPERTENSION
     Dosage: 2X1 TBL FROM 18TH WEEK
     Route: 064

REACTIONS (3)
  - PREMATURE BABY [None]
  - DRUG EXPOSURE DURING PREGNANCY [None]
  - LARGE FOR DATES BABY [None]
